FAERS Safety Report 9296024 (Version 3)
Quarter: 2013Q3

REPORT INFORMATION
  Report Type: Spontaneous
  Country: US (occurrence: US)
  Receive Date: 20130517
  Receipt Date: 20130701
  Transmission Date: 20140515
  Serious: Yes (Other)
  Sender: FDA-Public Use
  Company Number: US-BAYER-2013-061179

PATIENT
  Age: 37 Year
  Sex: Female
  Weight: 65.31 kg

DRUGS (3)
  1. MIRENA [Suspect]
     Indication: CONTRACEPTION
     Dosage: 20 MCG/24HR, CONT
     Route: 015
     Dates: start: 20110929, end: 20130423
  2. ZITROMAX [Concomitant]
     Indication: MULTIPLE ALLERGIES
  3. LEVAQUIN [Concomitant]
     Indication: MULTIPLE ALLERGIES

REACTIONS (10)
  - Genital haemorrhage [None]
  - Burning sensation [None]
  - Discomfort [None]
  - Pain [None]
  - Metrorrhagia [Not Recovered/Not Resolved]
  - Vulvovaginal mycotic infection [None]
  - Abdominal pain lower [None]
  - Genital haemorrhage [Recovering/Resolving]
  - Vulvovaginal discomfort [Not Recovered/Not Resolved]
  - Device dislocation [Recovered/Resolved]
